FAERS Safety Report 8019515-2 (Version None)
Quarter: 2012Q1

REPORT INFORMATION
  Report Type: 
  Country: None (occurrence: None)
  Receive Date: 20120103
  Receipt Date: 20111229
  Transmission Date: 20120608
  Serious: Yes (Hospitalization, Disabling, Other)
  Sender: FDA-Public Use
  Company Number: PHEH2006US13646

PATIENT
  Sex: Male

DRUGS (38)
  1. HERCEPTIN [Concomitant]
  2. SENNA-S (DOCUSATE SODIUM/SENNA ALEXANDRINA) [Concomitant]
  3. METFORMIN HCL [Concomitant]
     Dosage: 100 MG, QMO
  4. GLIPIZIDE [Concomitant]
     Dosage: 10 MG, UNK
     Route: 048
  5. SINGULAIR [Concomitant]
     Dosage: 10 MG, PRN
  6. XELODA [Concomitant]
  7. ARIMIDEX [Concomitant]
  8. LORAZEPAM [Concomitant]
     Dosage: 3 MG, UNK
  9. DIPHENHYDRAMINE HCL [Concomitant]
     Dosage: 75 MG, UNK
  10. ATENOLOL [Concomitant]
     Dosage: 50 MG, QMO
     Route: 048
  11. GEMFIBROZIL [Concomitant]
     Dosage: 600 MG, UNK
     Route: 048
  12. OMEPRAZOLE [Concomitant]
     Dosage: 20 MG, QMO
     Route: 048
  13. ZOMETA [Suspect]
     Dates: end: 20060101
  14. LEVOTHYROXINE SODIUM [Concomitant]
     Dosage: 88 UG, UNK
  15. LUNESTA [Concomitant]
     Dosage: 3 M, QHS
     Route: 048
  16. MULTI-VITAMIN [Concomitant]
  17. FASLODEX [Concomitant]
  18. OXYCONTIN [Concomitant]
  19. MUCINEX [Concomitant]
     Dosage: 600 MG, QMO
  20. LUPRON [Concomitant]
  21. ACTOPLUS MET [Concomitant]
  22. PERCOCET [Concomitant]
     Dosage: 325 MG, UNK
  23. ASPIRIN [Concomitant]
     Dosage: 325 MG, UNK
  24. TUSSIONEX [Concomitant]
  25. PROCRIT [Concomitant]
  26. MUCINEX DM [Concomitant]
  27. LIPITOR [Concomitant]
     Dosage: 20 MG, UNK
  28. PRAVASTATIN [Concomitant]
  29. GABAPENTIN [Concomitant]
  30. NAVELBINE [Concomitant]
  31. AVANDIA [Concomitant]
  32. TAMOXIFEN CITRATE [Concomitant]
  33. PREVACID [Concomitant]
     Dosage: 30 MG, DAILY
  34. SYNTHROID [Concomitant]
     Dosage: 88 MG, DAILY
  35. LISINOPRIL [Concomitant]
     Dosage: 10 MG, DAILY
  36. LOPID [Concomitant]
     Dosage: 60 MG, UNK
  37. NIACIN [Concomitant]
  38. NIASPAN [Concomitant]

REACTIONS (100)
  - OSTEONECROSIS OF JAW [None]
  - GENERAL PHYSICAL HEALTH DETERIORATION [None]
  - HAEMOGLOBIN DECREASED [None]
  - LYMPHOCYTE PERCENTAGE DECREASED [None]
  - DYSLIPIDAEMIA [None]
  - GASTRIC ULCER [None]
  - CORONARY ARTERY DISEASE [None]
  - MELANOSIS COLI [None]
  - RETINOPATHY [None]
  - OEDEMA PERIPHERAL [None]
  - BLOOD GLUCOSE INCREASED [None]
  - MYELOPATHY [None]
  - PALMAR-PLANTAR ERYTHRODYSAESTHESIA SYNDROME [None]
  - WHEEZING [None]
  - PYREXIA [None]
  - ATELECTASIS [None]
  - CAUDA EQUINA SYNDROME [None]
  - HEPATIC STEATOSIS [None]
  - TRICUSPID VALVE INCOMPETENCE [None]
  - LYMPHOEDEMA [None]
  - INJURY [None]
  - IRRITABLE BOWEL SYNDROME [None]
  - URETHRAL MEATUS STENOSIS [None]
  - LUNG NEOPLASM MALIGNANT [None]
  - NEUROPATHY PERIPHERAL [None]
  - BONE DISORDER [None]
  - TOOTHACHE [None]
  - LOCALISED INFECTION [None]
  - CELLULITIS [None]
  - DIABETIC NEPHROPATHY [None]
  - HYPOTHYROIDISM [None]
  - ANXIETY [None]
  - ASTHMA [None]
  - SOMNOLENCE [None]
  - RECTAL POLYP [None]
  - BLOOD CREATINE PHOSPHOKINASE INCREASED [None]
  - RENAL FAILURE CHRONIC [None]
  - HEPATIC CIRRHOSIS [None]
  - EJECTION FRACTION DECREASED [None]
  - OSTEOPOROSIS [None]
  - OSTEOARTHRITIS [None]
  - ABDOMINAL HERNIA [None]
  - ENTERITIS [None]
  - HYPOXIA [None]
  - PAIN [None]
  - PRODUCTIVE COUGH [None]
  - ABDOMINAL PAIN [None]
  - RHINITIS ALLERGIC [None]
  - LEFT ATRIAL DILATATION [None]
  - BREAST CANCER RECURRENT [None]
  - ASPARTATE AMINOTRANSFERASE INCREASED [None]
  - OSTEOMYELITIS [None]
  - KIDNEY ENLARGEMENT [None]
  - SINUS DISORDER [None]
  - HAEMATOCHEZIA [None]
  - DECREASED INTEREST [None]
  - TOOTH FRACTURE [None]
  - DIABETIC FOOT [None]
  - CATARACT [None]
  - HIGH DENSITY LIPOPROTEIN INCREASED [None]
  - PYELONEPHRITIS [None]
  - PAIN IN EXTREMITY [None]
  - GASTROOESOPHAGEAL REFLUX DISEASE [None]
  - PHIMOSIS [None]
  - HEPATITIS C [None]
  - TENOSYNOVITIS [None]
  - PNEUMONIA [None]
  - URTICARIA [None]
  - GASTROINTESTINAL HAEMORRHAGE [None]
  - IMPAIRED HEALING [None]
  - RED BLOOD CELL COUNT DECREASED [None]
  - PALPITATIONS [None]
  - SLEEP DISORDER [None]
  - GASTRITIS [None]
  - LEFT VENTRICULAR HYPERTROPHY [None]
  - AORTIC VALVE INCOMPETENCE [None]
  - ANGINA PECTORIS [None]
  - DEPRESSION [None]
  - ODYNOPHAGIA [None]
  - PAIN IN JAW [None]
  - LYMPHADENOPATHY [None]
  - TACHYCARDIA [None]
  - OROPHARYNGEAL PAIN [None]
  - CALCULUS URINARY [None]
  - SNORING [None]
  - HYPERSOMNIA [None]
  - MITRAL VALVE INCOMPETENCE [None]
  - IRITIS [None]
  - BLOOD THYROID STIMULATING HORMONE INCREASED [None]
  - CARDIAC MURMUR [None]
  - URINARY TRACT INFECTION [None]
  - INFECTED SKIN ULCER [None]
  - SLEEP APNOEA SYNDROME [None]
  - HAEMORRHOIDS [None]
  - DRY EYE [None]
  - SMALL INTESTINAL OBSTRUCTION [None]
  - INTERVERTEBRAL DISC DEGENERATION [None]
  - COSTOCHONDRITIS [None]
  - HAEMATURIA [None]
  - DYSPNOEA EXERTIONAL [None]
